FAERS Safety Report 5745822-X (Version None)
Quarter: 2008Q2

REPORT INFORMATION
  Report Type: 
  Country: None (occurrence: None)
  Receive Date: 20080520
  Receipt Date: 20080507
  Transmission Date: 20081010
  Serious: Yes (Hospitalization)
  Sender: FDA-Public Use
  Company Number: CHNY2008GB01882

PATIENT
  Age: 39 Year
  Sex: Female

DRUGS (12)
  1. LACTULOSE [Suspect]
  2. OLANZAPINE [Suspect]
     Dosage: 20 MG
  3. CLONAZEPAM [Suspect]
     Dosage: 0.5 MG, QD
  4. FOLIC ACID [Suspect]
     Dosage: 500 MCG DAILY
  5. METOCLOPRAMIDE [Suspect]
     Dosage: 10 MG
  6. LITHIUM CARBONATE [Suspect]
     Indication: BIPOLAR DISORDER
     Dosage: 1.7 G PER DAY
  7. RANITIDINE [Suspect]
     Dosage: 50 MG, INTRAVENOUS
     Route: 042
  8. SODIUM CITRATE [Suspect]
     Dosage: ORAL
     Route: 048
  9. THIOPENTAL SODIUM [Suspect]
     Dosage: 250 MG
  10. SUXAMETHONIUM CHLORIDE(SUXAMETHONIUM CHLORIDE) [Suspect]
     Dosage: 100 MG
  11. ISOFLURANE [Suspect]
  12. HARTMANN'S SOLUTION(CALCIUM CHLORIDE DIHYDRATE, POTASSIUM CHLORIDE, SO [Suspect]
     Dosage: 1 L

REACTIONS (20)
  - AGITATION [None]
  - ANAEMIA OF PREGNANCY [None]
  - ANAESTHETIC COMPLICATION [None]
  - BLOOD SODIUM DECREASED [None]
  - BLOOD UREA INCREASED [None]
  - CAESAREAN SECTION [None]
  - CONFUSIONAL STATE [None]
  - COUGH [None]
  - DISORIENTATION [None]
  - DRUG EXPOSURE DURING PREGNANCY [None]
  - DRUG LEVEL INCREASED [None]
  - HAEMODIALYSIS [None]
  - HYDRONEPHROSIS [None]
  - PLATELET COUNT INCREASED [None]
  - POST PROCEDURAL COMPLICATION [None]
  - PREMATURE LABOUR [None]
  - RESTLESSNESS [None]
  - THERAPEUTIC AGENT TOXICITY [None]
  - TWIN PREGNANCY [None]
  - URINOMA [None]
